FAERS Safety Report 10265845 (Version 1)
Quarter: 2014Q2

REPORT INFORMATION
  Report Type: Spontaneous
  Country: BE (occurrence: BE)
  Receive Date: 20140627
  Receipt Date: 20140627
  Transmission Date: 20141212
  Serious: Yes (Death, Hospitalization, Other)
  Sender: FDA-Public Use
  Company Number: BE-VIIV HEALTHCARE LIMITED-B1008409A

PATIENT
  Age: 67 Year
  Sex: Male

DRUGS (7)
  1. LAMIVUDINE-HIV [Suspect]
     Indication: HIV INFECTION
     Route: 065
  2. ABACAVIR [Suspect]
     Indication: HIV INFECTION
     Route: 065
  3. LOPINAVIR + RITONAVIR [Suspect]
     Indication: HIV INFECTION
     Route: 065
  4. EMTRICITABINE [Suspect]
     Indication: HIV INFECTION
     Route: 065
  5. TENOFOVIR [Suspect]
     Indication: HIV INFECTION
     Route: 065
  6. ETHAMBUTOL [Concomitant]
  7. CLARITHROMYCIN [Concomitant]

REACTIONS (15)
  - Immune reconstitution inflammatory syndrome [Unknown]
  - Multi-organ failure [Fatal]
  - Mycobacterium avium complex infection [Unknown]
  - Renal failure acute [Unknown]
  - Pericardial effusion [Unknown]
  - Renal tubular necrosis [Unknown]
  - Tubulointerstitial nephritis [Unknown]
  - Nephropathy [Unknown]
  - Enterococcal infection [Unknown]
  - Lung infection [Unknown]
  - Enterobacter infection [Unknown]
  - Pseudomonas infection [Unknown]
  - Cytomegalovirus infection [Unknown]
  - Aspergillus infection [Unknown]
  - Cytomegalovirus colitis [Unknown]
